FAERS Safety Report 21777937 (Version 1)
Quarter: 2022Q4

REPORT INFORMATION
  Report Type: Spontaneous
  Country: US (occurrence: US)
  Receive Date: 20221226
  Receipt Date: 20221226
  Transmission Date: 20230113
  Serious: No
  Sender: FDA-Public Use
  Company Number: US-BRISTOL-MYERS SQUIBB COMPANY-2022-157667

PATIENT
  Age: 50 Year
  Sex: Female

DRUGS (9)
  1. ORENCIA [Suspect]
     Active Substance: ABATACEPT
     Indication: Rheumatoid arthritis
     Dosage: DOSE : 125MG;     FREQ : WEEKLY INJECTIONS^
     Route: 058
     Dates: start: 202202
  2. ORENCIA [Suspect]
     Active Substance: ABATACEPT
     Indication: Fibromyalgia
  3. IBUPROFEN\METHOCARBAMOL [Concomitant]
     Active Substance: IBUPROFEN\METHOCARBAMOL
     Indication: Product used for unknown indication
  4. ZANAFLEX [Concomitant]
     Active Substance: TIZANIDINE HYDROCHLORIDE
     Indication: Product used for unknown indication
  5. HYDROXYCHLOROQUINE DIPHOSPHATE [Concomitant]
     Active Substance: HYDROXYCHLOROQUINE DIPHOSPHATE
     Indication: Product used for unknown indication
  6. AZATHIOPRINE [Concomitant]
     Active Substance: AZATHIOPRINE
  7. ECZ MILK THISTLE [Concomitant]
     Indication: Product used for unknown indication
  8. LYRICA [Concomitant]
     Active Substance: PREGABALIN
     Indication: Product used for unknown indication
  9. POTASSIUM K 20 [Concomitant]
     Indication: Product used for unknown indication

REACTIONS (5)
  - Product prescribing issue [Unknown]
  - Product prescribing error [Unknown]
  - Musculoskeletal stiffness [Unknown]
  - Off label use [Unknown]
  - Osteoporosis [Unknown]

NARRATIVE: CASE EVENT DATE: 20221218
